FAERS Safety Report 7765149-4 (Version None)
Quarter: 2011Q3

REPORT INFORMATION
  Report Type: 
  Country: None (occurrence: None)
  Receive Date: 20110916
  Receipt Date: 20110404
  Transmission Date: 20111222
  Serious: Yes (Death, Hospitalization)
  Sender: FDA-Public Use
  Company Number: 2011US-43549

PATIENT
  Age: 78 Year
  Sex: Female

DRUGS (3)
  1. METFORMIN HYDROCHLORIDE [Suspect]
     Indication: PRODUCT USED FOR UNKNOWN INDICATION
     Dosage: 850 MG, BID
  2. ZOLENDRONIC ACID (ZOLENDRONIC ACID) INFUSION [Suspect]
     Indication: OSTEOPOROSIS
     Dosage: 5MG/100ML
  3. RISEDRONIC ACID (RISEDRONIC ACID) [Concomitant]

REACTIONS (12)
  - HEART RATE DECREASED [None]
  - HAEMODIALYSIS [None]
  - TOXICITY TO VARIOUS AGENTS [None]
  - LACTIC ACIDOSIS [None]
  - PUPILLARY REFLEX IMPAIRED [None]
  - DRY EYE [None]
  - RESPIRATORY RATE DECREASED [None]
  - UNRESPONSIVE TO STIMULI [None]
  - RENAL FAILURE ACUTE [None]
  - PERIPHERAL COLDNESS [None]
  - BLOOD PRESSURE DECREASED [None]
  - BODY TEMPERATURE DECREASED [None]
